FAERS Safety Report 24990220 (Version 1)
Quarter: 2025Q1

REPORT INFORMATION
  Report Type: Spontaneous
  Country: US (occurrence: US)
  Receive Date: 20250220
  Receipt Date: 20250220
  Transmission Date: 20250409
  Serious: No
  Sender: ALEXION PHARMACEUTICALS
  Company Number: US-AstraZeneca-CH-00810003AP

PATIENT

DRUGS (1)
  1. BREZTRI [Suspect]
     Active Substance: BUDESONIDE\FORMOTEROL\GLYCOPYRROLATE

REACTIONS (6)
  - Wrong technique in device usage process [Unknown]
  - Coronavirus infection [Unknown]
  - Vision blurred [Unknown]
  - Cognitive disorder [Unknown]
  - Confusional state [Unknown]
  - Stress [Unknown]
